FAERS Safety Report 4979181-7 (Version None)
Quarter: 2006Q2

REPORT INFORMATION
  Report Type: 
  Country: None (occurrence: None)
  Receive Date: 20060421
  Receipt Date: 20060403
  Transmission Date: 20061013
  Serious: Yes (Hospitalization, Other)
  Sender: FDA-Public Use
  Company Number: CA-GLAXOSMITHKLINE-A0600368A

PATIENT
  Age: 85 Year
  Sex: Female
  Weight: 55 kg

DRUGS (5)
  1. VALTREX [Suspect]
     Dosage: 1G THREE TIMES PER DAY
     Route: 048
     Dates: start: 20060327
  2. AMITRIPTYLINE HCL [Concomitant]
  3. PREDNISONE [Concomitant]
     Indication: RHEUMATOID ARTHRITIS
     Dosage: 15MG PER DAY
  4. DILAUDID [Concomitant]
     Indication: RHEUMATOID ARTHRITIS
     Dosage: 2MG THREE TIMES PER DAY
     Dates: start: 20051201
  5. ELAVIL [Concomitant]
     Dosage: 10MG SINGLE DOSE

REACTIONS (2)
  - ASTHENIA [None]
  - MALAISE [None]
